FAERS Safety Report 6327810-8 (Version None)
Quarter: 2009Q3

REPORT INFORMATION
  Report Type: 
  Country: None (occurrence: None)
  Receive Date: 20090824
  Receipt Date: 20090814
  Transmission Date: 20100115
  Serious: Yes (Hospitalization)
  Sender: FDA-Public Use
  Company Number: RENA-1000526

PATIENT
  Age: 85 Year
  Sex: Female

DRUGS (1)
  1. RENAGEL [Suspect]
     Indication: HYPERPHOSPHATAEMIA
     Dosage: 0.4 G, TID, ORAL
     Route: 048

REACTIONS (1)
  - HOSPITALISATION [None]
